FAERS Safety Report 24217214 (Version 1)
Quarter: 2024Q3

REPORT INFORMATION
  Report Type: Spontaneous
  Country: US (occurrence: None)
  Receive Date: 20240815
  Receipt Date: 20240815
  Transmission Date: 20241017
  Serious: Yes (Other)
  Sender: Public
  Company Number: None

PATIENT
  Age: 73 Year
  Sex: Female
  Weight: 113 kg

DRUGS (15)
  1. EYLEA HD [Suspect]
     Active Substance: AFLIBERCEPT
     Indication: Visual impairment
     Route: 047
  2. LANTUS [Concomitant]
  3. HUMALOG [Concomitant]
     Active Substance: INSULIN LISPRO
  4. Uniys [Concomitant]
  5. BABY ASPIRIN [Concomitant]
  6. CARVEDILOL [Concomitant]
  7. GABAPENTIN [Concomitant]
  8. Ropininrole [Concomitant]
  9. DULOXETINE [Concomitant]
  10. AMLODIPINE [Concomitant]
  11. ALPRAZOLAM [Concomitant]
  12. Dialvite [Concomitant]
  13. ZINC [Concomitant]
     Active Substance: ZINC
  14. Temazopam [Concomitant]
  15. TYLENOL [Concomitant]

REACTIONS (4)
  - Retinal detachment [None]
  - Impaired healing [None]
  - Vision blurred [None]
  - Retinal scar [None]

NARRATIVE: CASE EVENT DATE: 20240613
